FAERS Safety Report 21987704 (Version 1)
Quarter: 2023Q1

REPORT INFORMATION
  Report Type: Spontaneous
  Country: IT (occurrence: IT)
  Receive Date: 20230214
  Receipt Date: 20230214
  Transmission Date: 20230417
  Serious: Yes (Hospitalization)
  Sender: FDA-Public Use
  Company Number: IT-PADAGIS-2023PAD00138

PATIENT

DRUGS (1)
  1. ALBUTEROL SULFATE [Suspect]
     Active Substance: ALBUTEROL SULFATE
     Indication: Respiratory distress
     Dosage: UNK (REPEATED ADMINISTRATION)
     Route: 045

REACTIONS (2)
  - Disease progression [Unknown]
  - Product use issue [Unknown]
